FAERS Safety Report 8022418-0 (Version None)
Quarter: 2012Q1

REPORT INFORMATION
  Report Type: 
  Country: None (occurrence: None)
  Receive Date: 20120104
  Receipt Date: 20120101
  Transmission Date: 20120608
  Serious: Yes (Hospitalization)
  Sender: FDA-Public Use
  Company Number: DE-ROCHE-737061

PATIENT
  Sex: Female
  Weight: 57 kg

DRUGS (13)
  1. ENALAPRIL MALEATE [Concomitant]
  2. PREGABALIN [Concomitant]
  3. NOVALGIN [Concomitant]
  4. ALENDRONATE SODIUM [Concomitant]
     Dosage: 1 DOSE FORM: 70 MG ALENDRONIC ACID PLUS 70 UG COLECALCIFEROL
  5. PREDNISOLONE [Concomitant]
     Indication: RHEUMATOID ARTHRITIS
  6. ACTEMRA [Suspect]
     Indication: RHEUMATOID ARTHRITIS
     Route: 042
  7. LEFLUNOMIDE [Concomitant]
     Indication: RHEUMATOID ARTHRITIS
  8. DICLOFENAC [Concomitant]
  9. PRAMIPEXOLE DIHYDROCHLORIDE [Concomitant]
  10. FERROUS SULFATE TAB [Concomitant]
  11. RESTEX [Concomitant]
  12. PANTOPRAZOLE [Concomitant]
  13. TORSEMIDE [Concomitant]

REACTIONS (2)
  - GANGRENE [None]
  - RHEUMATOID NODULE [None]
